FAERS Safety Report 25226915 (Version 1)
Quarter: 2025Q2

REPORT INFORMATION
  Report Type: Report from Study
  Country: CA (occurrence: CA)
  Receive Date: 20250422
  Receipt Date: 20250422
  Transmission Date: 20250717
  Serious: Yes (Other)
  Sender: TAKEDA
  Company Number: CA-TAKEDA-2019TUS044642

PATIENT
  Sex: Male

DRUGS (22)
  1. VEDOLIZUMAB [Suspect]
     Active Substance: VEDOLIZUMAB
     Indication: Colitis ulcerative
  2. VEDOLIZUMAB [Suspect]
     Active Substance: VEDOLIZUMAB
  3. VEDOLIZUMAB [Suspect]
     Active Substance: VEDOLIZUMAB
     Dosage: 300 MILLIGRAM, Q4WEEKS
  4. VEDOLIZUMAB [Suspect]
     Active Substance: VEDOLIZUMAB
  5. MESALAMINE [Concomitant]
     Active Substance: MESALAMINE
     Dosage: 500 MILLIGRAM, QID
     Dates: start: 20181123
  6. ACETAMINOPHEN [Concomitant]
     Active Substance: ACETAMINOPHEN
     Dosage: 975 MILLIGRAM, TID
     Dates: start: 20181213
  7. ATORVASTATIN [Concomitant]
     Active Substance: ATORVASTATIN
     Dosage: 40 MILLIGRAM, QD
     Dates: start: 20181115
  8. CHOLECALCIFEROL [Concomitant]
     Active Substance: CHOLECALCIFEROL
     Dosage: UNK UNK, QD
     Dates: start: 20181115
  9. CODEINE [Concomitant]
     Active Substance: CODEINE
     Indication: Pain
     Dosage: 50 MILLIGRAM, QD
     Dates: start: 20181116
  10. CODEINE [Concomitant]
     Active Substance: CODEINE
     Dosage: 15 MILLIGRAM, QID
     Dates: start: 20181116
  11. DALTEPARIN [Concomitant]
     Active Substance: DALTEPARIN
     Dosage: UNK UNK, QD
     Dates: start: 20181115
  12. DICLOFENAC DIETHYLAMINE [Concomitant]
     Active Substance: DICLOFENAC DIETHYLAMINE
     Dosage: UNK UNK, TID
     Dates: start: 20181114
  13. ESCITALOPRAM [Concomitant]
     Active Substance: ESCITALOPRAM OXALATE
     Dosage: 10 MILLIGRAM, QD
     Dates: start: 20181115
  14. GABAPENTIN [Concomitant]
     Active Substance: GABAPENTIN
     Dosage: 600 MILLIGRAM, Q8HR
     Dates: start: 20181128
  15. LACTOBACILLUS RHAMNOSUS [Concomitant]
     Active Substance: LACTOBACILLUS RHAMNOSUS
     Dosage: UNK UNK, TID
     Dates: start: 20181217
  16. LEVETIRACETAM [Concomitant]
     Active Substance: LEVETIRACETAM
     Dosage: 500 MILLIGRAM, BID
     Dates: start: 20181230
  17. LOPERAMIDE [Concomitant]
     Active Substance: LOPERAMIDE
     Indication: Diarrhoea
     Dosage: 2 MILLIGRAM, TID
     Dates: start: 20190107
  18. LOPERAMIDE [Concomitant]
     Active Substance: LOPERAMIDE
     Dosage: 2 MILLIGRAM, QID
     Dates: start: 20181128
  19. PSYLLIUM HUSK [Concomitant]
     Active Substance: PSYLLIUM HUSK
     Dosage: 5.8 GRAM, QD
     Dates: start: 20181214
  20. RANITIDINE [Concomitant]
     Active Substance: RANITIDINE
     Dosage: 150 MILLIGRAM, QD
     Dates: start: 20181114
  21. WARFARIN [Concomitant]
     Active Substance: WARFARIN
     Dosage: 150 MILLIGRAM, BID
     Dates: start: 20181220
  22. WARFARIN [Concomitant]
     Active Substance: WARFARIN
     Dosage: UNK UNK, QD
     Dates: start: 20190109

REACTIONS (3)
  - Haematochezia [Unknown]
  - Frequent bowel movements [Unknown]
  - Product dose omission issue [Unknown]
